FAERS Safety Report 14173865 (Version 1)
Quarter: 2017Q4

REPORT INFORMATION
  Report Type: Spontaneous
  Country: FR (occurrence: FR)
  Receive Date: 20171109
  Receipt Date: 20171109
  Transmission Date: 20180321
  Serious: Yes (Other)
  Sender: FDA-Public Use
  Company Number: FR-MERCK KGAA-2033680

PATIENT
  Age: 85 Year
  Sex: Female

DRUGS (16)
  1. VENLAFAXINE [Concomitant]
     Active Substance: VENLAFAXINE HYDROCHLORIDE
  2. BISOCE [Concomitant]
     Active Substance: BISOPROLOL
  3. LYSANXIA [Concomitant]
     Active Substance: PRAZEPAM
  4. COUMADINE [Concomitant]
     Active Substance: WARFARIN SODIUM
  5. FORADIL [Concomitant]
     Active Substance: FORMOTEROL FUMARATE
  6. DAFALGAN [Concomitant]
     Active Substance: ACETAMINOPHEN
  7. CALCIPARINE [Concomitant]
     Active Substance: HEPARIN CALCIUM
  8. NOVOTHYROX [Suspect]
     Active Substance: LEVOTHYROXINE SODIUM
     Indication: PRODUCT USED FOR UNKNOWN INDICATION
     Dates: start: 201704
  9. ALLOPURINOL. [Concomitant]
     Active Substance: ALLOPURINOL
  10. MIFLONIL [Concomitant]
     Active Substance: BUDESONIDE
  11. MOVICOL [Concomitant]
     Active Substance: POLYETHYLENE GLYCOL 3350\POTASSIUM CHLORIDE\SODIUM BICARBONATE\SODIUM CHLORIDE
  12. VISMED [Concomitant]
     Active Substance: HYALURONATE SODIUM
  13. LAMALINE [Concomitant]
     Active Substance: ACETAMINOPHEN\CAFFEINE\OPIUM
  14. INIPOMP [Concomitant]
     Active Substance: PANTOPRAZOLE SODIUM
  15. FUROSEMIDE. [Concomitant]
     Active Substance: FUROSEMIDE
  16. UVEDOSE [Concomitant]
     Active Substance: CHOLECALCIFEROL

REACTIONS (8)
  - Fall [None]
  - Pelvic fracture [None]
  - Upper limb fracture [None]
  - Wrist fracture [None]
  - Vertigo [None]
  - Gait disturbance [None]
  - Pleural effusion [None]
  - Malaise [None]

NARRATIVE: CASE EVENT DATE: 201706
